FAERS Safety Report 6265756-4 (Version None)
Quarter: 2009Q3

REPORT INFORMATION
  Report Type: 
  Country: None (occurrence: None)
  Receive Date: 20090709
  Receipt Date: 20090709
  Transmission Date: 20100115
  Serious: Yes (Other)
  Sender: FDA-Public Use
  Company Number: None

PATIENT
  Age: 51 Year
  Sex: Male
  Weight: 104.3273 kg

DRUGS (1)
  1. ZICAM COLD REMEDY GEL SWABS ZINCUM GLUCONICUM 2X [Suspect]
     Indication: NASOPHARYNGITIS
     Dosage: 6 MEDICATED SWABS TWICE A DAY NASAL
     Route: 045
     Dates: start: 20081015, end: 20081017

REACTIONS (2)
  - ANOSMIA [None]
  - PRODUCT QUALITY ISSUE [None]
